FAERS Safety Report 5630768-8 (Version None)
Quarter: 2008Q1

REPORT INFORMATION
  Report Type: 
  Country: None (occurrence: None)
  Receive Date: 20080219
  Receipt Date: 20080211
  Transmission Date: 20080703
  Serious: Yes (Other)
  Sender: FDA-Public Use
  Company Number: US-ASTRAZENECA-2006UW27775

PATIENT
  Age: 522 Month
  Sex: Female
  Weight: 100 kg

DRUGS (2)
  1. SEROQUEL [Suspect]
     Indication: BIPOLAR DISORDER
     Dosage: 25 MG TO 100 MG
     Route: 048
     Dates: start: 20031001, end: 20060601
  2. ZYPREXA [Concomitant]
     Dates: start: 20010731, end: 20020215

REACTIONS (3)
  - DIABETES MELLITUS [None]
  - GALLBLADDER OPERATION [None]
  - OBESITY [None]
